FAERS Safety Report 9188322 (Version 1)
Quarter: 2013Q1

REPORT INFORMATION
  Report Type: Spontaneous
  Country: US (occurrence: US)
  Receive Date: 20130325
  Receipt Date: 20130325
  Transmission Date: 20140127
  Serious: No
  Sender: FDA-Public Use
  Company Number: US-MYLANLABS-2012S1025776

PATIENT
  Age: 67 Year
  Sex: Female
  Weight: 54.43 kg

DRUGS (2)
  1. FENTANYL TRANSDERMAL SYSTEM [Suspect]
     Indication: ABDOMINAL PAIN
     Dosage: Q72H
     Route: 062
     Dates: start: 20121128, end: 20121201
  2. FENTANYL TRANSDERMAL SYSTEM [Suspect]
     Indication: ABDOMINAL PAIN
     Dosage: Q72H
     Route: 062
     Dates: start: 20121201, end: 20121207

REACTIONS (2)
  - Lethargy [Recovered/Resolved]
  - Hypersomnia [Recovered/Resolved]
